FAERS Safety Report 5964237-2 (Version None)
Quarter: 2008Q4

REPORT INFORMATION
  Report Type: 
  Country: None (occurrence: None)
  Receive Date: 20081124
  Receipt Date: 20081115
  Transmission Date: 20090506
  Serious: No
  Sender: FDA-Public Use
  Company Number: US-PFIZER INC-2008083792

PATIENT
  Sex: Female

DRUGS (1)
  1. DETROL LA [Suspect]

REACTIONS (2)
  - DRY MOUTH [None]
  - FATIGUE [None]
